FAERS Safety Report 6688318-3 (Version None)
Quarter: 2010Q2

REPORT INFORMATION
  Report Type: 
  Country: None (occurrence: None)
  Receive Date: 20100420
  Receipt Date: 20100406
  Transmission Date: 20101027
  Serious: Yes (Hospitalization)
  Sender: FDA-Public Use
  Company Number: FR-BAYER-201021436GPV

PATIENT
  Age: 37 Year

DRUGS (1)
  1. ULTRAVIST 370 [Suspect]
     Indication: ARTHROGRAM
     Route: 014
     Dates: start: 20100323, end: 20100323

REACTIONS (2)
  - ARTHRITIS [None]
  - PAIN [None]
